FAERS Safety Report 8778507 (Version 2)
Quarter: 2012Q4

REPORT INFORMATION
  Report Type: 
  Country: GB (occurrence: GB)
  Receive Date: 20120912
  Receipt Date: 20120912
  Transmission Date: 20130627
  Serious: Yes (Death, Hospitalization)
  Sender: FDA-Public Use
  Company Number: GB-BAXTER-2012BAX012678

PATIENT
  Sex: Male
  Weight: 50 kg

DRUGS (3)
  1. GLUCOSE, LIQUID [Suspect]
     Indication: AUTOMATED PERITONEAL DIALYSIS
     Dosage: 1 BAG
     Route: 033
     Dates: start: 20120616
  2. GLUCOSE, LIQUID [Suspect]
     Indication: AUTOMATED PERITONEAL DIALYSIS
     Dosage: 2 BAGS
     Route: 033
     Dates: start: 20120616
  3. EXTRANEAL [Suspect]
     Indication: AUTOMATED PERITONEAL DIALYSIS
     Dosage: 1 BAG
     Route: 033
     Dates: start: 20120616

REACTIONS (2)
  - Cerebral haemorrhage [Fatal]
  - Hydrocephalus [Fatal]
